FAERS Safety Report 22232897 (Version 1)
Quarter: 2023Q2

REPORT INFORMATION
  Report Type: Other
  Country: US (occurrence: None)
  Receive Date: 20230420
  Receipt Date: 20230420
  Transmission Date: 20230722
  Serious: No
  Sender: FDA-Public Use
  Company Number: US-ROCHE-3177615

PATIENT
  Age: 57 Year
  Sex: Female

DRUGS (8)
  1. BEVACIZUMAB [Suspect]
     Active Substance: BEVACIZUMAB
     Indication: Glaucoma
     Dosage: 1.25 MG IN 0.05 ML
     Route: 050
  2. TIMOLOL [Concomitant]
     Active Substance: TIMOLOL
     Indication: Intraocular pressure test
  3. BRIMONIDINE [Concomitant]
     Active Substance: BRIMONIDINE TARTRATE
     Indication: Intraocular pressure test
  4. DORZOLAMIDE [Concomitant]
     Active Substance: DORZOLAMIDE
     Indication: Intraocular pressure test
  5. LATANOPROST [Concomitant]
     Active Substance: LATANOPROST
     Indication: Intraocular pressure test
  6. ACETAZOLAMIDE [Concomitant]
     Active Substance: ACETAZOLAMIDE
     Indication: Intraocular pressure test
  7. NETARSUDIL [Concomitant]
     Active Substance: NETARSUDIL
     Indication: Intraocular pressure test
  8. TRIAMCINOLONE [Concomitant]
     Active Substance: TRIAMCINOLONE
     Indication: Intraocular pressure test

REACTIONS (3)
  - Off label use [Unknown]
  - Off label use [Unknown]
  - No adverse event [Unknown]
